FAERS Safety Report 20813705 (Version 1)
Quarter: 2022Q2

REPORT INFORMATION
  Report Type: Report from Study
  Country: US (occurrence: US)
  Receive Date: 20220511
  Receipt Date: 20220511
  Transmission Date: 20220721
  Serious: Yes (Other)
  Sender: FDA-Public Use
  Company Number: US-BRISTOL-MYERS SQUIBB COMPANY-2022-030588

PATIENT
  Age: 84 Year
  Sex: Male
  Weight: 72.1 kg

DRUGS (1)
  1. REVLIMID [Suspect]
     Active Substance: LENALIDOMIDE
     Indication: Plasma cell myeloma
     Dosage: AT BEDTIME
     Route: 048
     Dates: start: 20211216

REACTIONS (2)
  - COVID-19 [Unknown]
  - Product dose omission issue [Unknown]
